FAERS Safety Report 10187950 (Version 1)
Quarter: 2014Q2

REPORT INFORMATION
  Report Type: Spontaneous
  Country: US (occurrence: US)
  Receive Date: 20140522
  Receipt Date: 20140522
  Transmission Date: 20141212
  Serious: No
  Sender: FDA-Public Use
  Company Number: US-SA-2013SA105099

PATIENT
  Age: 55 Year
  Sex: Female

DRUGS (7)
  1. LANTUS SOLOSTAR [Suspect]
     Dosage: DOSE:60 UNIT(S)
     Route: 051
     Dates: start: 20120828
  2. GLIMEPIRIDE [Suspect]
  3. SOLOSTAR [Concomitant]
     Dates: start: 20130307
  4. ZETIA [Concomitant]
  5. HUMALOG [Concomitant]
  6. GLUCOPHAGE XR [Concomitant]
  7. FENOFIBRATE [Concomitant]

REACTIONS (4)
  - Urticaria [Unknown]
  - Blood glucose increased [Unknown]
  - Blood glucose abnormal [Unknown]
  - Incorrect product storage [Unknown]
